FAERS Safety Report 6668814-5 (Version None)
Quarter: 2010Q2

REPORT INFORMATION
  Report Type: 
  Country: None (occurrence: None)
  Receive Date: 20100402
  Receipt Date: 20100330
  Transmission Date: 20101027
  Serious: Yes (Hospitalization)
  Sender: FDA-Public Use
  Company Number: C10-016

PATIENT
  Sex: Female
  Weight: 59.4 kg

DRUGS (3)
  1. CHEST CONGESTION RELIEF D [Suspect]
     Indication: NASAL DECONGESTION THERAPY
     Dosage: SOLID, ORAL, Q4D
  2. SINGULAR (DAILY) [Concomitant]
  3. ALBUTEROL (AS NEEDED) [Concomitant]

REACTIONS (4)
  - DIZZINESS [None]
  - DYSPNOEA [None]
  - HEART RATE INCREASED [None]
  - HEART RATE IRREGULAR [None]
